FAERS Safety Report 5626632-0 (Version None)
Quarter: 2008Q1

REPORT INFORMATION
  Report Type: 
  Country: None (occurrence: None)
  Receive Date: 20080214
  Receipt Date: 20080201
  Transmission Date: 20080703
  Serious: Yes (Death, Life-Threatening, Hospitalization)
  Sender: FDA-Public Use
  Company Number: JP-PFIZER INC-2008007221

PATIENT
  Sex: Female
  Weight: 61 kg

DRUGS (19)
  1. ZYVOX [Suspect]
     Indication: STAPHYLOCOCCAL INFECTION
     Dosage: DAILY DOSE:600MG-FREQ:FREQUENCY: BID
     Route: 042
     Dates: start: 20080115, end: 20080119
  2. TARGOCID [Concomitant]
     Dates: start: 20071230, end: 20080109
  3. FINIBAX [Concomitant]
     Route: 042
     Dates: start: 20080108, end: 20080110
  4. CLINDAMYCIN HCL [Concomitant]
     Route: 042
     Dates: start: 20080109, end: 20080110
  5. PASIL [Concomitant]
     Route: 042
     Dates: start: 20071228, end: 20080107
  6. PRODIF [Concomitant]
     Route: 042
     Dates: start: 20080111, end: 20080121
  7. DIGOSIN [Concomitant]
     Route: 042
     Dates: start: 20071226, end: 20080122
  8. TAKEPRON [Concomitant]
     Route: 042
     Dates: start: 20071221, end: 20080122
  9. BISOLVON [Concomitant]
     Route: 042
     Dates: start: 20071221, end: 20080122
  10. ALBUMINAR [Concomitant]
     Route: 042
     Dates: start: 20080117, end: 20080122
  11. FRAGMIN [Concomitant]
     Route: 042
     Dates: start: 20080104, end: 20080122
  12. ELASPOL [Concomitant]
     Route: 042
     Dates: start: 20071221, end: 20080121
  13. HUMULIN 70/30 [Concomitant]
     Route: 042
     Dates: start: 20071221, end: 20080122
  14. ALL OTHER THERAPEUTIC PRODUCTS [Concomitant]
     Route: 042
     Dates: start: 20080103, end: 20080122
  15. MINERALIN [Concomitant]
     Route: 042
     Dates: start: 20080103, end: 20080122
  16. ALL OTHER THERAPEUTIC PRODUCTS [Concomitant]
     Route: 042
     Dates: start: 20080103, end: 20080122
  17. POTASSIUM CHLORIDE [Concomitant]
     Route: 042
     Dates: start: 20080113, end: 20080122
  18. PROPOFOL [Concomitant]
     Route: 042
     Dates: start: 20071221, end: 20080122
  19. AMINOLEBAN [Concomitant]
     Route: 042
     Dates: start: 20080109, end: 20080122

REACTIONS (4)
  - AGRANULOCYTOSIS [None]
  - DISSEMINATED INTRAVASCULAR COAGULATION [None]
  - LUNG DISORDER [None]
  - PLATELET COUNT DECREASED [None]
